FAERS Safety Report 17736189 (Version 1)
Quarter: 2020Q2

REPORT INFORMATION
  Report Type: Spontaneous
  Country: JP (occurrence: JP)
  Receive Date: 20200501
  Receipt Date: 20200501
  Transmission Date: 20200714
  Serious: Yes (Other)
  Sender: FDA-Public Use
  Company Number: JP-AMGEN-JPNSP2020068893

PATIENT
  Sex: Female

DRUGS (1)
  1. PRALIA [Suspect]
     Active Substance: DENOSUMAB
     Indication: PRODUCT USED FOR UNKNOWN INDICATION
     Dosage: 60 MG, TWICE
     Route: 065
     Dates: start: 20170128, end: 20170728

REACTIONS (3)
  - Bone sequestrum [Unknown]
  - Pain [Unknown]
  - Gingival swelling [Unknown]

NARRATIVE: CASE EVENT DATE: 201802
